FAERS Safety Report 18005314 (Version 5)
Quarter: 2021Q1

REPORT INFORMATION
  Report Type: Report from Study
  Country: GB (occurrence: GB)
  Receive Date: 20200710
  Receipt Date: 20210331
  Transmission Date: 20210419
  Serious: Yes (Hospitalization)
  Sender: FDA-Public Use
  Company Number: GB-BIOGEN-2020BI00894812

PATIENT
  Age: 75 Year
  Sex: Female

DRUGS (1)
  1. TECFIDERA [Suspect]
     Active Substance: DIMETHYL FUMARATE
     Indication: RELAPSING-REMITTING MULTIPLE SCLEROSIS
     Dosage: MAINTENANCE DOSE
     Route: 048
     Dates: start: 20200622

REACTIONS (12)
  - Confusional state [Recovered/Resolved]
  - Balance disorder [Not Recovered/Not Resolved]
  - White blood cell count decreased [Unknown]
  - Hepatic function abnormal [Unknown]
  - Lymphopenia [Unknown]
  - Dysphagia [Not Recovered/Not Resolved]
  - Dyspepsia [Not Recovered/Not Resolved]
  - Malnutrition [Unknown]
  - Urinary tract infection [Recovered/Resolved]
  - Discomfort [Unknown]
  - Odynophagia [Not Recovered/Not Resolved]
  - Flushing [Not Recovered/Not Resolved]

NARRATIVE: CASE EVENT DATE: 202006
